FAERS Safety Report 11788108 (Version 1)
Quarter: 2015Q4

REPORT INFORMATION
  Report Type: Spontaneous
  Country: None (occurrence: KR)
  Receive Date: 20151201
  Receipt Date: 20151201
  Transmission Date: 20160305
  Serious: Yes (Hospitalization)
  Sender: FDA-Public Use
  Company Number: KR-HOSPIRA-3090865

PATIENT
  Age: 48 Year
  Sex: Female
  Weight: 55.3 kg

DRUGS (9)
  1. GEMCITABINE HYDROCHLORIDE. [Suspect]
     Active Substance: GEMCITABINE HYDROCHLORIDE
     Indication: BREAST CANCER METASTATIC
     Dosage: DAY 1
     Route: 041
     Dates: start: 20151105
  2. DICODIN [Concomitant]
     Active Substance: DIHYDROCODEINE
     Indication: PRODUCTIVE COUGH
     Dates: start: 20151108
  3. ERIBULIN [Suspect]
     Active Substance: ERIBULIN
     Indication: BREAST CANCER METASTATIC
     Dosage: DAY 1
     Route: 041
     Dates: start: 20151105
  4. ERIBULIN [Suspect]
     Active Substance: ERIBULIN
     Indication: BREAST CANCER METASTATIC
     Dosage: DAY 8
     Route: 041
     Dates: start: 20151112
  5. GEMCITABINE HYDROCHLORIDE. [Suspect]
     Active Substance: GEMCITABINE HYDROCHLORIDE
     Indication: BREAST CANCER METASTATIC
     Dosage: DAY 8
     Route: 041
     Dates: start: 20151112
  6. CODEINE [Concomitant]
     Active Substance: CODEINE
     Indication: COUGH
     Dates: start: 20151107
  7. VIREAD [Concomitant]
     Active Substance: TENOFOVIR DISOPROXIL FUMARATE
     Indication: VIRAL HEPATITIS CARRIER
     Dates: start: 20151106
  8. RESPILENE                          /00094201/ [Concomitant]
     Indication: PRODUCTIVE COUGH
     Dates: start: 20151108
  9. PETHIDINE [Concomitant]
     Active Substance: MEPERIDINE
     Indication: PAIN
     Dates: start: 20151109, end: 20151119

REACTIONS (2)
  - Hypoalbuminaemia [Unknown]
  - Pyrexia [Recovered/Resolved]

NARRATIVE: CASE EVENT DATE: 20151106
